FAERS Safety Report 4427473-2 (Version None)
Quarter: 2004Q3

REPORT INFORMATION
  Report Type: 
  Country: None (occurrence: None)
  Receive Date: 20040816
  Receipt Date: 20040816
  Transmission Date: 20050211
  Serious: No
  Sender: FDA-Public Use
  Company Number: None

PATIENT
  Age: 55 Year
  Sex: Male
  Weight: 66.6788 kg

DRUGS (6)
  1. METFORMIN 500 MGS [Suspect]
     Indication: DIABETES MELLITUS NON-INSULIN-DEPENDENT
     Dosage: 500 BID PO
     Route: 048
  2. LIPITOR [Concomitant]
  3. ACCUPRIL [Concomitant]
  4. VIOXX [Concomitant]
  5. ZYRTEC [Concomitant]
  6. FLEXRIL [Concomitant]

REACTIONS (2)
  - DIZZINESS [None]
  - HEADACHE [None]
